FAERS Safety Report 9869204 (Version 1)
Quarter: 2014Q1

REPORT INFORMATION
  Report Type: Spontaneous
  Country: BR (occurrence: BR)
  Receive Date: 20140205
  Receipt Date: 20140205
  Transmission Date: 20141002
  Serious: Yes (Other)
  Sender: FDA-Public Use
  Company Number: BR-ROCHE-1342937

PATIENT
  Age: 37 Year
  Sex: Female
  Weight: 87.9 kg

DRUGS (9)
  1. TRASTUZUMAB [Suspect]
     Indication: BREAST CANCER
     Route: 042
     Dates: start: 20130511, end: 20130511
  2. TRASTUZUMAB [Suspect]
     Route: 042
     Dates: start: 200811, end: 200903
  3. MORPHINE [Concomitant]
     Route: 065
     Dates: start: 20130415, end: 20130515
  4. PARACETAMOL [Concomitant]
     Route: 065
     Dates: start: 20130415, end: 20130515
  5. FLUOROURACIL [Concomitant]
     Indication: BREAST CANCER
     Route: 065
     Dates: start: 200811, end: 200903
  6. ADRIAMYCIN [Concomitant]
     Indication: BREAST CANCER
     Route: 065
     Dates: start: 200811, end: 200903
  7. CYCLOPHOSPHAMIDE [Concomitant]
     Indication: BREAST CANCER
     Route: 065
     Dates: start: 200811, end: 200903
  8. DOCETAXEL [Concomitant]
     Indication: BREAST CANCER
     Route: 065
     Dates: start: 200811, end: 200903
  9. TAMOXIFEN [Concomitant]
     Route: 065
     Dates: start: 200906

REACTIONS (4)
  - Breast cancer recurrent [Unknown]
  - Metastases to bone [Not Recovered/Not Resolved]
  - Chills [Recovered/Resolved]
  - Tremor [Recovered/Resolved]
